FAERS Safety Report 4880783-7 (Version None)
Quarter: 2006Q1

REPORT INFORMATION
  Report Type: 
  Country: None (occurrence: None)
  Receive Date: 20060111
  Receipt Date: 20050329
  Transmission Date: 20060701
  Serious: No
  Sender: FDA-Public Use
  Company Number: 2005S1000122

PATIENT

DRUGS (20)
  1. CUBICIN [Suspect]
     Dosage: 450 MG;Q24H;IV
     Route: 042
     Dates: start: 20050205, end: 20050216
  2. ACETAMINOPHEN [Concomitant]
  3. ALBUMIN (HUMAN) [Concomitant]
  4. ALPRAZOLAM [Concomitant]
  5. CASPOFUNGIN [Concomitant]
  6. DARBEPOETIN ALFA [Concomitant]
  7. ERTAPENEM [Concomitant]
  8. FERROUS SULFATE TAB [Concomitant]
  9. FLUCONAZOLE [Concomitant]
  10. FOLIC ACID [Concomitant]
  11. FUROSEMIDE [Concomitant]
  12. POTASSIUM CHLORIDE [Concomitant]
  13. LEVOTHYROXINE SODIUM [Concomitant]
  14. LINEZOLID [Concomitant]
  15. MAGNESIUM SULFATE [Concomitant]
  16. ONDANSETRON [Concomitant]
  17. OXYCODONE [Concomitant]
  18. ZOSYN [Concomitant]
  19. SODIUM PHOSPHATES [Concomitant]
  20. VANCOMYCIN [Concomitant]

REACTIONS (1)
  - INTERNATIONAL NORMALISED RATIO INCREASED [None]
